FAERS Safety Report 21083559 (Version 4)
Quarter: 2022Q4

REPORT INFORMATION
  Report Type: Spontaneous
  Country: US (occurrence: US)
  Receive Date: 20220714
  Receipt Date: 20221025
  Transmission Date: 20230113
  Serious: No
  Sender: FDA-Public Use
  Company Number: US-BRISTOL-MYERS SQUIBB COMPANY-2022-072908

PATIENT
  Age: 68 Year
  Sex: Female

DRUGS (4)
  1. REVLIMID [Suspect]
     Active Substance: LENALIDOMIDE
     Indication: Plasma cell myeloma
     Dosage: FREQ:OTHER
     Route: 048
     Dates: start: 202204
  2. REVLIMID [Suspect]
     Active Substance: LENALIDOMIDE
     Indication: Hypothyroidism
     Dosage: FREQ: OTHER
     Route: 048
     Dates: start: 202204
  3. REVLIMID [Suspect]
     Active Substance: LENALIDOMIDE
     Indication: Hypertension
     Route: 048
     Dates: start: 202205
  4. REVLIMID [Suspect]
     Active Substance: LENALIDOMIDE
     Dosage: DAILY
     Route: 048

REACTIONS (3)
  - Abdominal pain [Unknown]
  - Diarrhoea [Unknown]
  - Abdominal pain upper [Unknown]

NARRATIVE: CASE EVENT DATE: 20220704
